FAERS Safety Report 8559647-3 (Version None)
Quarter: 2012Q3

REPORT INFORMATION
  Report Type: 
  Country: None (occurrence: None)
  Receive Date: 20120727
  Receipt Date: 20120727
  Transmission Date: 20120928
  Serious: Yes (Hospitalization)
  Sender: FDA-Public Use
  Company Number: None

PATIENT
  Age: 92 Year
  Sex: Female
  Weight: 68 kg

DRUGS (19)
  1. CELEXA [Concomitant]
  2. NOVOLOG [Concomitant]
  3. TYLENOL [Concomitant]
  4. BENADRYL [Concomitant]
  5. COUMADIN [Suspect]
     Indication: ATRIAL FIBRILLATION
     Dosage: 5MG   4/10 + 4/11  PO  RECENT W/RECENT OD
     Route: 048
  6. QUESTRAN [Concomitant]
  7. CALCIUM CARBONATE [Concomitant]
  8. FENOFIBRATE [Concomitant]
  9. IMODIUM [Concomitant]
  10. MYLANTA [Concomitant]
  11. DILTIAZEM [Concomitant]
  12. METFORMIN HYDROCHLORIDE [Concomitant]
  13. PHENIRAMINE [Concomitant]
  14. PHENERGAN HCL [Concomitant]
  15. MIRALAX [Concomitant]
  16. DULCOLAX [Concomitant]
  17. SYNTHROID [Concomitant]
  18. DIGOXIN [Concomitant]
  19. ACIDOPHILUS [Concomitant]

REACTIONS (3)
  - INTERNATIONAL NORMALISED RATIO INCREASED [None]
  - COAGULOPATHY [None]
  - INCORRECT DOSE ADMINISTERED [None]
